FAERS Safety Report 6491697-3 (Version None)
Quarter: 2009Q4

REPORT INFORMATION
  Report Type: 
  Country: None (occurrence: None)
  Receive Date: 20091207
  Receipt Date: 20091123
  Transmission Date: 20100525
  Serious: Yes (Disabling)
  Sender: FDA-Public Use
  Company Number: 2009EU000385

PATIENT
  Age: 54 Year
  Sex: Male
  Weight: 60 kg

DRUGS (5)
  1. PROTOPIC [Suspect]
     Indication: PSORIASIS
     Dosage: 0.1%, UID/QD, TOPICAL
     Route: 061
     Dates: start: 20081015, end: 20081115
  2. PROTOPIC [Suspect]
     Indication: PSORIASIS
     Dosage: 0.1%, UID/QD, TOPICAL
     Route: 061
     Dates: start: 20081114, end: 20081116
  3. PROTOPIC [Suspect]
     Indication: PSORIASIS
     Dosage: 0.1%, UID/QD, TOPICAL
     Route: 061
     Dates: start: 20081217, end: 20090118
  4. DIPROSONE     (BETAMETHASONE SODIUM PHOSPHATE) [Concomitant]
  5. DEXERYL      (WHITE SOFT PARAFFIN, PARAFFIN LIQUID) [Concomitant]

REACTIONS (6)
  - APPLICATION SITE OEDEMA [None]
  - APPLICATION SITE PAIN [None]
  - CYSTIC LYMPHANGIOMA [None]
  - IMPAIRED WORK ABILITY [None]
  - OFF LABEL USE [None]
  - TENDONITIS [None]
